FAERS Safety Report 7042327-3 (Version None)
Quarter: 2010Q4

REPORT INFORMATION
  Report Type: 
  Country: None (occurrence: None)
  Receive Date: 20101013
  Receipt Date: 20100610
  Transmission Date: 20110411
  Serious: No
  Sender: FDA-Public Use
  Company Number: US-ASTRAZENECA-2010SE27160

PATIENT
  Age: 64 Year
  Sex: Female

DRUGS (2)
  1. SYMBICORT [Suspect]
     Dosage: 2 PUFFS
     Route: 055
     Dates: start: 20100301
  2. SYMBICORT [Suspect]
     Dosage: 2 PUFFS
     Route: 055
     Dates: end: 20100401

REACTIONS (2)
  - DRUG DOSE OMISSION [None]
  - DYSPNOEA [None]
